FAERS Safety Report 6349328-9 (Version None)
Quarter: 2009Q3

REPORT INFORMATION
  Report Type: 
  Country: None (occurrence: None)
  Receive Date: 20090911
  Receipt Date: 20090903
  Transmission Date: 20100115
  Serious: Yes (Death)
  Sender: FDA-Public Use
  Company Number: B0592576A

PATIENT
  Age: 46 Year
  Sex: Male

DRUGS (2)
  1. LAPATINIB [Suspect]
     Dosage: 1250MG PER DAY
     Route: 065
     Dates: start: 20090101
  2. CHEMOTHERAPY [Concomitant]
     Route: 065

REACTIONS (2)
  - DISEASE PROGRESSION [None]
  - OFF LABEL USE [None]
